FAERS Safety Report 8339787-4 (Version None)
Quarter: 2012Q2

REPORT INFORMATION
  Report Type: 
  Country: None (occurrence: None)
  Receive Date: 20120507
  Receipt Date: 20120424
  Transmission Date: 20120825
  Serious: Yes (Other)
  Sender: FDA-Public Use
  Company Number: JP-UCBSA-055292

PATIENT
  Age: 40 Year
  Sex: Male
  Weight: 58 kg

DRUGS (2)
  1. XYZAL [Suspect]
     Indication: RHINITIS SEASONAL
     Route: 048
     Dates: start: 20120312, end: 20120409
  2. LIVOSTIN [Concomitant]
     Indication: CONJUNCTIVITIS ALLERGIC
     Dosage: DOSAGE FORM: DRPP
     Route: 031
     Dates: start: 20120312

REACTIONS (5)
  - DYSPHONIA [None]
  - DYSPNOEA [None]
  - MUSCULOSKELETAL STIFFNESS [None]
  - TREMOR [None]
  - CONVULSION [None]
